FAERS Safety Report 4499203-X (Version None)
Quarter: 2004Q4

REPORT INFORMATION
  Report Type: 
  Country: None (occurrence: None)
  Receive Date: 20041111
  Receipt Date: 20041101
  Transmission Date: 20050328
  Serious: Yes (Other)
  Sender: FDA-Public Use
  Company Number: US-GLAXOSMITHKLINE-A0532018A

PATIENT
  Age: 29 Year
  Sex: Male

DRUGS (2)
  1. PAXIL CR [Suspect]
     Indication: DEPRESSION
     Dosage: 25MG PER DAY
     Route: 048
  2. ZYPREXA [Concomitant]

REACTIONS (5)
  - COGNITIVE DISORDER [None]
  - HYPOAESTHESIA [None]
  - PARAESTHESIA [None]
  - PSYCHOTIC DISORDER [None]
  - TYPHOID FEVER [None]
